FAERS Safety Report 6279055-8 (Version None)
Quarter: 2009Q3

REPORT INFORMATION
  Report Type: 
  Country: None (occurrence: None)
  Receive Date: 20090723
  Receipt Date: 20090714
  Transmission Date: 20100115
  Serious: Yes (Other)
  Sender: FDA-Public Use
  Company Number: US-BAYER-200926645NA

PATIENT
  Age: 37 Year
  Sex: Female
  Weight: 47 kg

DRUGS (2)
  1. MIRENA [Suspect]
     Indication: CONTRACEPTION
     Dosage: CONTINUOUS
     Route: 015
     Dates: start: 20081112, end: 20090709
  2. MULTI-VITAMIN [Concomitant]

REACTIONS (5)
  - CHEST DISCOMFORT [None]
  - OEDEMA PERIPHERAL [None]
  - PANIC ATTACK [None]
  - THROAT TIGHTNESS [None]
  - TONSILLAR HYPERTROPHY [None]
